FAERS Safety Report 7265985-7 (Version None)
Quarter: 2011Q1

REPORT INFORMATION
  Report Type: 
  Country: None (occurrence: None)
  Receive Date: 20110131
  Receipt Date: 20110127
  Transmission Date: 20110831
  Serious: Yes (Life-Threatening)
  Sender: FDA-Public Use
  Company Number: PHHY2011CZ02630

PATIENT
  Sex: Male

DRUGS (3)
  1. LORISTA [Concomitant]
     Dosage: 1 DF, QD (50)
  2. SORTIS [Concomitant]
     Dosage: 20 MG, QD
  3. FLUOROURACIL [Suspect]
     Dosage: 1000 MG/M2, UNK
     Route: 042
     Dates: start: 20101206, end: 20110105

REACTIONS (7)
  - DIARRHOEA [None]
  - ASTHENIA [None]
  - NEUTROPENIA [None]
  - TONGUE EXFOLIATION [None]
  - HYPOTENSION [None]
  - MUCOSAL INFLAMMATION [None]
  - HYPOKALAEMIA [None]
